FAERS Safety Report 5392215-3 (Version None)
Quarter: 2007Q3

REPORT INFORMATION
  Report Type: 
  Country: None (occurrence: None)
  Receive Date: 20070720
  Receipt Date: 20070706
  Transmission Date: 20080115
  Serious: Yes (Hospitalization)
  Sender: FDA-Public Use
  Company Number: US-AVENTIS-200711387US

PATIENT
  Age: 71 Year
  Sex: Female

DRUGS (7)
  1. LANTUS [Suspect]
  2. OPTICLIK (INSULIN INJECTION PEN) [Suspect]
  3. AVANDIA [Concomitant]
     Dosage: DOSE: UNK
  4. METOPROLOL TARTRATE [Concomitant]
     Dosage: DOSE: UNK
  5. ALTACE [Concomitant]
     Dosage: DOSE: UNK
  6. SIMVASTIN [Concomitant]
     Dosage: DOSE: UNK
  7. ASPIRIN [Concomitant]

REACTIONS (5)
  - COUGH [None]
  - ENTEROCOLITIS INFECTIOUS [None]
  - EYE DISORDER [None]
  - SINUSITIS [None]
  - VISION BLURRED [None]
